FAERS Safety Report 18113458 (Version 1)
Quarter: 2020Q3

REPORT INFORMATION
  Report Type: Spontaneous
  Country: US (occurrence: US)
  Receive Date: 20200804
  Receipt Date: 20200804
  Transmission Date: 20201103
  Serious: Yes (Other)
  Sender: FDA-Public Use
  Company Number: None

PATIENT
  Age: 55 Year
  Sex: Female

DRUGS (4)
  1. RIBOACIB [Concomitant]
  2. ZOLEDRONIC ACID [Concomitant]
     Active Substance: ZOLEDRONIC ACID
  3. GOSERELIN [Concomitant]
     Active Substance: GOSERELIN
  4. LACTULOSE SOLUTION [Suspect]
     Active Substance: LACTULOSE
     Indication: HEPATIC ENCEPHALOPATHY
     Route: 048
     Dates: start: 20200720

REACTIONS (2)
  - Nausea [None]
  - Drug intolerance [None]

NARRATIVE: CASE EVENT DATE: 20200731
